FAERS Safety Report 15151000 (Version 1)
Quarter: 2018Q3

REPORT INFORMATION
  Report Type: Spontaneous
  Country: US (occurrence: US)
  Receive Date: 20180716
  Receipt Date: 20180716
  Transmission Date: 20181010
  Serious: No
  Sender: FDA-Public Use
  Company Number: US-SA-2018SA183950

PATIENT
  Sex: Female

DRUGS (13)
  1. BACLOFEN. [Concomitant]
     Active Substance: BACLOFEN
  2. MYRBETRIQ [Concomitant]
     Active Substance: MIRABEGRON
  3. TOPAMAX [Concomitant]
     Active Substance: TOPIRAMATE
     Indication: MULTIPLE SCLEROSIS
  4. CLARITIN [LORATADINE] [Concomitant]
  5. MIRALAX [Concomitant]
     Active Substance: POLYETHYLENE GLYCOL 3350
  6. VITAMIN D [ERGOCALCIFEROL] [Concomitant]
  7. AUBAGIO [Suspect]
     Active Substance: TERIFLUNOMIDE
     Dosage: 14 MG, QD
     Route: 048
     Dates: start: 2017
  8. NORVASC [Concomitant]
     Active Substance: AMLODIPINE BESYLATE
  9. IMITREX [SUMATRIPTAN] [Concomitant]
  10. VITAMIN C [ASCORBIC ACID] [Concomitant]
  11. AMPYRA [Concomitant]
     Active Substance: DALFAMPRIDINE
  12. BELSOMRA [Concomitant]
     Active Substance: SUVOREXANT
  13. SYNTHROID [Concomitant]
     Active Substance: LEVOTHYROXINE SODIUM

REACTIONS (2)
  - Alopecia [Unknown]
  - Depression [Unknown]
